FAERS Safety Report 4537506-0 (Version None)
Quarter: 2004Q4

REPORT INFORMATION
  Report Type: 
  Country: None (occurrence: None)
  Receive Date: 20041223
  Receipt Date: 20041214
  Transmission Date: 20050328
  Serious: Yes (Life-Threatening, Hospitalization, Disabling, Other)
  Sender: FDA-Public Use
  Company Number: US-MERCK-0412USA01800

PATIENT
  Age: 65 Year
  Sex: Male

DRUGS (1)
  1. VIOXX [Suspect]
     Route: 048

REACTIONS (4)
  - CHEST PAIN [None]
  - CORONARY ARTERY OCCLUSION [None]
  - MYOCARDIAL INFARCTION [None]
  - PARALYSIS [None]
